FAERS Safety Report 19558800 (Version 2)
Quarter: 2024Q1

REPORT INFORMATION
  Report Type: Spontaneous
  Country: US (occurrence: US)
  Receive Date: 20210714
  Receipt Date: 20240116
  Transmission Date: 20240410
  Serious: No
  Sender: FDA-Public Use
  Company Number: US-SK LIFE SCIENCE, INC-SKPVG-2020-000668

PATIENT

DRUGS (5)
  1. XCOPRI [Suspect]
     Active Substance: CENOBAMATE
     Indication: Generalised tonic-clonic seizure
     Dosage: UNK
     Route: 048
     Dates: start: 2020, end: 2020
  2. XCOPRI [Suspect]
     Active Substance: CENOBAMATE
     Indication: Epilepsy
     Dosage: 200 MILLIGRAM, 1 TABLET AT 10 PM BEFORE BED QD
     Route: 048
     Dates: start: 2020
  3. XCOPRI [Suspect]
     Active Substance: CENOBAMATE
     Dosage: 200 MILLIGRAM, 1 TABLET AT 10 PM BEFORE BED QD
     Route: 048
     Dates: start: 202011
  4. XCOPRI [Suspect]
     Active Substance: CENOBAMATE
     Dosage: 200 MILLIGRAM, QD
     Route: 048
     Dates: start: 20210205, end: 20230212
  5. XCOPRI [Suspect]
     Active Substance: CENOBAMATE
     Dosage: 200 MILLIGRAM, QD
     Route: 065
     Dates: end: 20230220

REACTIONS (7)
  - Product dose omission issue [Recovered/Resolved]
  - Seizure [Recovered/Resolved]
  - Product dose omission issue [Recovered/Resolved]
  - Product use issue [Unknown]
  - Off label use [Unknown]
  - Product dose omission issue [Not Recovered/Not Resolved]
  - Seizure [Unknown]

NARRATIVE: CASE EVENT DATE: 20201101
